FAERS Safety Report 13396967 (Version 1)
Quarter: 2017Q2

REPORT INFORMATION
  Report Type: Spontaneous
  Country: US (occurrence: US)
  Receive Date: 20170403
  Receipt Date: 20170403
  Transmission Date: 20170830
  Serious: Yes (Hospitalization)
  Sender: FDA-Public Use
  Company Number: None

PATIENT
  Age: 68 Year
  Sex: Male

DRUGS (1)
  1. RITUXIMAB [Suspect]
     Active Substance: RITUXIMAB
     Indication: RHEUMATOID ARTHRITIS
     Dosage: 1000 MG OTHER IV
     Route: 042
     Dates: start: 20161212, end: 20161212

REACTIONS (4)
  - Dyspnoea [None]
  - Nausea [None]
  - Pharyngeal oedema [None]
  - Dizziness [None]

NARRATIVE: CASE EVENT DATE: 20161212
